FAERS Safety Report 12171078 (Version 7)
Quarter: 2017Q1

REPORT INFORMATION
  Report Type: Spontaneous
  Country: US (occurrence: US)
  Receive Date: 20160311
  Receipt Date: 20170117
  Transmission Date: 20170428
  Serious: Yes (Congenital Anomaly, Other)
  Sender: FDA-Public Use
  Company Number: PHEH2016US005802

PATIENT
  Sex: Female

DRUGS (3)
  1. ONDANSETRON HYDROCHLORIDE. [Suspect]
     Active Substance: ONDANSETRON HYDROCHLORIDE
     Indication: FOETAL EXPOSURE DURING PREGNANCY
     Dosage: MOTHER DOSE: 4 MG TID
     Route: 064
  2. ONDANSETRON [Suspect]
     Active Substance: ONDANSETRON
     Indication: FOETAL EXPOSURE DURING PREGNANCY
     Dosage: MOTHER^S DOSE: 04 MG, TID
     Route: 064
  3. ZOFRAN [Suspect]
     Active Substance: ONDANSETRON HYDROCHLORIDE
     Indication: FOETAL EXPOSURE DURING PREGNANCY
     Dosage: MOTHER DOSE: 4 MG Q8H
     Route: 064

REACTIONS (23)
  - Tibial torsion [Unknown]
  - Umbilical cord abnormality [Unknown]
  - Foetal exposure during pregnancy [Unknown]
  - Anhedonia [Unknown]
  - Heart disease congenital [Unknown]
  - Ventricular septal defect [Unknown]
  - Injury [Unknown]
  - Left-to-right cardiac shunt [Unknown]
  - Mitral valve incompetence [Unknown]
  - Emotional distress [Unknown]
  - Tonsillitis [Unknown]
  - Ear infection [Unknown]
  - Right ventricular hypertrophy [Unknown]
  - Anxiety [Unknown]
  - Congenital anomaly [Unknown]
  - Pulmonary valve stenosis congenital [Unknown]
  - Keratosis pilaris [Unknown]
  - Atrial septal defect [Unknown]
  - Radius fracture [Unknown]
  - Pain [Unknown]
  - Femoral anteversion [Unknown]
  - Tricuspid valve incompetence [Unknown]
  - Sleep disorder [Unknown]
